FAERS Safety Report 6813144-1 (Version None)
Quarter: 2010Q2

REPORT INFORMATION
  Report Type: 
  Country: None (occurrence: None)
  Receive Date: 20100628
  Receipt Date: 20100614
  Transmission Date: 20101027
  Serious: Yes (Hospitalization)
  Sender: FDA-Public Use
  Company Number: 7008075

PATIENT
  Age: 45 Year
  Sex: Female

DRUGS (1)
  1. REBIF [Suspect]
     Indication: DRUG USE FOR UNKNOWN INDICATION
     Dosage: 22 MCG, 2 IN 1 WK, SUBCUTANEOUS
     Route: 058
     Dates: start: 20090910, end: 20100501

REACTIONS (7)
  - AREFLEXIA [None]
  - BACK PAIN [None]
  - CARDIOVASCULAR DISORDER [None]
  - GASTRITIS [None]
  - HEADACHE [None]
  - PAIN IN EXTREMITY [None]
  - ULCER [None]
